FAERS Safety Report 8254739-0 (Version None)
Quarter: 2012Q2

REPORT INFORMATION
  Report Type: 
  Country: None (occurrence: None)
  Receive Date: 20120403
  Receipt Date: 20120323
  Transmission Date: 20120825
  Serious: Yes (Other)
  Sender: FDA-Public Use
  Company Number: PHHY2012DE026411

PATIENT
  Sex: Female
  Weight: 84 kg

DRUGS (7)
  1. TORASEMIDE [Concomitant]
     Indication: CARDIAC FAILURE
     Dosage: 10 MG, QD
     Route: 048
     Dates: start: 20081104, end: 20101223
  2. DIURETICS [Concomitant]
     Dosage: DOSE INCREASED
  3. ANTICOAGULANTS [Concomitant]
     Route: 048
  4. FRAXIPARIN [Suspect]
     Indication: ATRIAL FIBRILLATION
     Dosage: 0.7 ML, QD
     Route: 058
     Dates: start: 20101213, end: 20101223
  5. NITRATES [Concomitant]
  6. METOPROLOL TARTRATE [Concomitant]
     Indication: HYPERTENSION
     Dosage: 50 MG, QD
     Route: 048
     Dates: start: 20081104, end: 20101223
  7. VALSARTAN [Suspect]
     Indication: HYPERTENSION
     Dosage: 320 MG, QD
     Route: 048
     Dates: end: 20081216

REACTIONS (9)
  - ELECTROCARDIOGRAM QT PROLONGED [None]
  - ANGINA PECTORIS [None]
  - ATRIAL FIBRILLATION [None]
  - ELECTROCARDIOGRAM QRS COMPLEX PROLONGED [None]
  - PAIN [None]
  - DYSPNOEA [None]
  - RHEUMATOID ARTHRITIS [None]
  - HEART RATE DECREASED [None]
  - BLOOD PRESSURE DIASTOLIC INCREASED [None]
